FAERS Safety Report 11887080 (Version 12)
Quarter: 2016Q4

REPORT INFORMATION
  Report Type: Report from Study
  Country: AU (occurrence: AU)
  Receive Date: 20160104
  Receipt Date: 20161228
  Transmission Date: 20170206
  Serious: Yes (Hospitalization, Other)
  Sender: FDA-Public Use
  Company Number: AU-SA-2015SA100780

PATIENT
  Age: 43 Year
  Sex: Female

DRUGS (14)
  1. LEMTRADA [Suspect]
     Active Substance: ALEMTUZUMAB
     Indication: MULTIPLE SCLEROSIS RELAPSE
     Route: 042
     Dates: start: 20150525, end: 20150529
  2. VALACICLOVIR [Concomitant]
     Active Substance: VALACYCLOVIR HYDROCHLORIDE
     Indication: PROPHYLAXIS
     Route: 048
     Dates: start: 20150524, end: 20150624
  3. TEMAZEPAM. [Concomitant]
     Active Substance: TEMAZEPAM
     Indication: PROPHYLAXIS
     Route: 048
     Dates: start: 20150523, end: 20150613
  4. METHYLPREDNISOLONE. [Concomitant]
     Active Substance: METHYLPREDNISOLONE
     Indication: PROPHYLAXIS
     Route: 042
     Dates: start: 20150525, end: 20150527
  5. PANADOL [Concomitant]
     Active Substance: ACETAMINOPHEN
     Indication: DRUG THERAPY
     Route: 048
     Dates: start: 1990
  6. IBUPROFEN. [Concomitant]
     Active Substance: IBUPROFEN
     Indication: DRUG THERAPY
     Route: 048
     Dates: start: 1990
  7. LYSINE [Concomitant]
     Active Substance: LYSINE
     Indication: PROPHYLAXIS
     Route: 048
     Dates: start: 2010
  8. LORATADINE. [Concomitant]
     Active Substance: LORATADINE
     Indication: PROPHYLAXIS
     Route: 048
     Dates: start: 20150524, end: 20150606
  9. TEMAZEPAM. [Concomitant]
     Active Substance: TEMAZEPAM
     Indication: DRUG THERAPY
     Route: 048
     Dates: start: 20150523, end: 20150613
  10. RANITIDINE. [Concomitant]
     Active Substance: RANITIDINE
     Indication: PROPHYLAXIS
     Route: 048
     Dates: start: 20150524, end: 20150606
  11. VALACICLOVIR [Concomitant]
     Active Substance: VALACYCLOVIR HYDROCHLORIDE
     Indication: PROPHYLAXIS
     Route: 048
     Dates: start: 20151204, end: 20151213
  12. ZOVIRAX [Concomitant]
     Active Substance: ACYCLOVIR
     Indication: HERPES ZOSTER
     Route: 061
     Dates: start: 2005
  13. BETMIGA [Concomitant]
     Active Substance: MIRABEGRON
     Indication: MULTIPLE SCLEROSIS
     Route: 048
     Dates: start: 201501, end: 20150916
  14. BETMIGA [Concomitant]
     Active Substance: MIRABEGRON
     Indication: MULTIPLE SCLEROSIS
     Route: 048
     Dates: start: 20150916, end: 20160623

REACTIONS (20)
  - Depressed mood [Not Recovered/Not Resolved]
  - Bladder dysfunction [Not Recovered/Not Resolved]
  - Oral herpes [Recovered/Resolved]
  - Palpitations [Recovered/Resolved]
  - Myalgia [Recovering/Resolving]
  - Insomnia [Unknown]
  - Bone pain [Recovered/Resolved]
  - Oral herpes [Recovering/Resolving]
  - Localised infection [Recovered/Resolved]
  - Rash [Recovered/Resolved]
  - Hemiparesis [Recovered/Resolved]
  - Fatigue [Recovered/Resolved]
  - Depressed mood [Recovered/Resolved]
  - Asthenia [Recovered/Resolved]
  - Eye pain [Recovered/Resolved]
  - Basal cell carcinoma [Recovered/Resolved]
  - Pelvic pain [Recovered/Resolved]
  - Arthralgia [Recovered/Resolved]
  - Upper respiratory tract infection [Recovered/Resolved]
  - Fatigue [Not Recovered/Not Resolved]

NARRATIVE: CASE EVENT DATE: 20150525
